FAERS Safety Report 21549362 (Version 1)
Quarter: 2022Q4

REPORT INFORMATION
  Report Type: Spontaneous
  Country: US (occurrence: None)
  Receive Date: 20221102
  Receipt Date: 20221102
  Transmission Date: 20230113
  Serious: Yes (Other)
  Sender: FDA-Public Use
  Company Number: None

PATIENT
  Age: 56 Year
  Sex: Female
  Weight: 74.25 kg

DRUGS (5)
  1. SENSODYNE FRESH MINT [Suspect]
     Active Substance: POTASSIUM NITRATE\SODIUM FLUORIDE
     Indication: Hyperaesthesia teeth
     Dosage: FREQUENCY : 3 TIMES A DAY;?
     Route: 061
     Dates: start: 20220929, end: 20221101
  2. LANTUS [Concomitant]
     Active Substance: INSULIN GLARGINE
  3. NOVOLOG [Concomitant]
     Active Substance: INSULIN ASPART
  4. TYLENOL [Concomitant]
     Active Substance: ACETAMINOPHEN
  5. IBUPROFEN [Concomitant]
     Active Substance: IBUPROFEN

REACTIONS (5)
  - Gingival discomfort [None]
  - Gingival discomfort [None]
  - Toothache [None]
  - Product communication issue [None]
  - Product complaint [None]

NARRATIVE: CASE EVENT DATE: 20221015
